FAERS Safety Report 21278603 (Version 1)
Quarter: 2022Q3

REPORT INFORMATION
  Report Type: Spontaneous
  Country: JP (occurrence: JP)
  Receive Date: 20220901
  Receipt Date: 20220901
  Transmission Date: 20221027
  Serious: Yes (Hospitalization)
  Sender: FDA-Public Use
  Company Number: JP-SUN PHARMACEUTICAL INDUSTRIES LTD-2022RR-352584

PATIENT
  Age: 65 Year
  Sex: Female
  Weight: 48 kg

DRUGS (6)
  1. PREDNISOLONE [Suspect]
     Active Substance: PREDNISOLONE
     Indication: Chronic kidney disease
     Dosage: 100 MILLIGRAM, DAILY
     Route: 048
  2. DOXORUBICIN [Suspect]
     Active Substance: DOXORUBICIN
     Indication: Chronic kidney disease
     Dosage: 70 MILLIGRAM, (50 MG/M2)
     Route: 042
  3. ONCOVIN [Suspect]
     Active Substance: VINCRISTINE SULFATE
     Indication: Chronic kidney disease
     Dosage: 2 MILLIGRAM,  (1.4 MG/M2)
     Route: 042
  4. CYCLOPHOSPHAMIDE [Suspect]
     Active Substance: CYCLOPHOSPHAMIDE
     Indication: Chronic kidney disease
     Dosage: 1000 MILLIGRAM, 750 MG/M2
     Route: 042
  5. VINDESINE [Suspect]
     Active Substance: VINDESINE
     Indication: Chronic kidney disease
     Dosage: 3 MILLIGRAM, UNK
     Route: 065
  6. RITUXIMAB [Suspect]
     Active Substance: RITUXIMAB
     Indication: Chronic kidney disease
     Dosage: 600 MILLIGRAM, UNK
     Route: 065

REACTIONS (4)
  - Constipation [Recovered/Resolved]
  - Blood lactate dehydrogenase increased [Recovered/Resolved]
  - Disease recurrence [Unknown]
  - Ileus [Recovered/Resolved]
